FAERS Safety Report 26081912 (Version 1)
Quarter: 2025Q4

REPORT INFORMATION
  Report Type: Spontaneous
  Country: IN (occurrence: None)
  Receive Date: 20251124
  Receipt Date: 20251124
  Transmission Date: 20260118
  Serious: Yes (Other)
  Sender: ENDO
  Company Number: IN-ENDO USA, INC.-2025-002316

PATIENT
  Age: 39 Year
  Sex: Male

DRUGS (4)
  1. FLUOXETINE HYDROCHLORIDE [Suspect]
     Active Substance: FLUOXETINE HYDROCHLORIDE
     Indication: Depression
     Dosage: 40 MILLIGRAM, OD (AFTER SLIGHT IMPROVEMENT)
     Route: 065
  2. FLUOXETINE HYDROCHLORIDE [Suspect]
     Active Substance: FLUOXETINE HYDROCHLORIDE
     Dosage: 60 MILLIGRAM, UNKNOWN (DIVIDED DOSES)
     Route: 065
  3. FLUOXETINE HYDROCHLORIDE [Suspect]
     Active Substance: FLUOXETINE HYDROCHLORIDE
     Dosage: 20 MILLIGRAM, OD
     Route: 065
  4. CLONAZEPAM [Concomitant]
     Active Substance: CLONAZEPAM
     Indication: Product used for unknown indication
     Dosage: 0.5 MILLIGRAM, QHS (FOR 2 WEEKS AND AFTER SLIGHT IMPROVEMENT AGAIN FOR 2 WEEKS)
     Route: 065

REACTIONS (1)
  - Extrapyramidal disorder [Recovered/Resolved]
